FAERS Safety Report 16703075 (Version 2)
Quarter: 2024Q4

REPORT INFORMATION
  Report Type: Spontaneous
  Country: CA (occurrence: CA)
  Receive Date: 20190814
  Receipt Date: 20241007
  Transmission Date: 20250114
  Serious: Yes (Other)
  Sender: PFIZER
  Company Number: CA-PFIZER INC-2018410757

PATIENT
  Age: 39 Year
  Sex: Female
  Weight: 113.38 kg

DRUGS (4)
  1. XELJANZ [Suspect]
     Active Substance: TOFACITINIB CITRATE
     Indication: Rheumatoid arthritis
     Dosage: 5 MG, 2X/DAY
     Route: 048
     Dates: start: 20180716, end: 20190211
  2. XELJANZ [Suspect]
     Active Substance: TOFACITINIB CITRATE
     Dosage: 5 MG, 2X/DAY
     Route: 048
     Dates: start: 2019, end: 2022
  3. ALYSENA [Concomitant]
     Dosage: UNK
     Route: 065
  4. METHOTREXATE [Concomitant]
     Active Substance: METHOTREXATE
     Dosage: 15 MG, WEEKLY
     Route: 048

REACTIONS (14)
  - Overweight [Unknown]
  - Throat tightness [Recovered/Resolved]
  - Claustrophobia [Recovered/Resolved]
  - Sensitivity to weather change [Unknown]
  - Pain [Unknown]
  - Mobility decreased [Unknown]
  - Gait inability [Unknown]
  - Peripheral swelling [Recovered/Resolved]
  - Food allergy [Unknown]
  - Sinus congestion [Unknown]
  - Hypertension [Recovered/Resolved]
  - Fatigue [Unknown]
  - Insomnia [Unknown]
  - Product dose omission issue [Unknown]

NARRATIVE: CASE EVENT DATE: 20190201
